FAERS Safety Report 8996844 (Version 1)
Quarter: 2012Q4

REPORT INFORMATION
  Report Type: Spontaneous
  Country: US (occurrence: None)
  Receive Date: 20121228
  Receipt Date: 20121228
  Transmission Date: 20130627
  Serious: Yes (Other)
  Sender: FDA-Public Use
  Company Number: None

PATIENT
  Age: 86 Year
  Sex: Female
  Weight: 57.38 kg

DRUGS (1)
  1. METRONIDAZOLE [Suspect]
     Indication: DIARRHEA
     Dosage: 250MG TABLET  4 TIMES PER DAY BY MOUTH
     Route: 048
     Dates: start: 20121130, end: 20121201

REACTIONS (9)
  - Abdominal pain upper [None]
  - Oral candidiasis [None]
  - Dry mouth [None]
  - Swollen tongue [None]
  - Eye pruritus [None]
  - Eye pain [None]
  - Pruritus [None]
  - Peripheral coldness [None]
  - Sensory loss [None]
